FAERS Safety Report 14409265 (Version 5)
Quarter: 2020Q3

REPORT INFORMATION
  Report Type: Report from Study
  Country: KR (occurrence: KR)
  Receive Date: 20180119
  Receipt Date: 20180316
  Transmission Date: 20201105
  Serious: Yes (Death, Life-Threatening, Hospitalization)
  Sender: FDA-Public Use
  Company Number: KR-ASTRAZENECA-2018SE06223

PATIENT
  Age: 837 Month
  Sex: Male

DRUGS (19)
  1. MEDI4736 [Suspect]
     Active Substance: DURVALUMAB
     Indication: NON-SMALL CELL LUNG CANCER
     Route: 042
     Dates: start: 20171207, end: 20171207
  2. TARGIN CR TAB   (OXYCODONE/NALOXONE) [Concomitant]
     Indication: PAIN
     Route: 048
     Dates: start: 20171207
  3. PEMETREXED. [Suspect]
     Active Substance: PEMETREXED
     Indication: NON-SMALL CELL LUNG CANCER
     Route: 042
     Dates: start: 20171208, end: 20171208
  4. FOLIC ACID. [Concomitant]
     Active Substance: FOLIC ACID
     Indication: PREMEDICATION
     Dosage: 1.0000MG DAILY
     Route: 048
  5. SYNATURA(R) SYR   (IVY LEAF/COPTIS RHIZOME EXT.) [Concomitant]
     Indication: COUGH
     Dosage: 15.0000ML, THREE TIMES A DAY
     Route: 048
     Dates: start: 20170114
  6. SODIUM BICARBONATE. [Concomitant]
     Active Substance: SODIUM BICARBONATE
     Indication: DRY MOUTH
     Dosage: 1.0000GQD
     Route: 002
     Dates: start: 20180104
  7. ERDOS (ERDOSTEINE) [Concomitant]
     Indication: COUGH
     Dosage: 900 MG THREE TIMES A DAY
     Route: 048
     Dates: end: 20171206
  8. CODEINE PHOSPHATE   (CODEINE) [Concomitant]
     Indication: COUGH
     Dosage: 20.0000MG, FOUR TIMES A DAY
     Route: 048
     Dates: start: 20180104
  9. LEVOTUSS (LEVODROPROPIZINE) [Concomitant]
     Indication: COUGH
     Dosage: 180 MG THREE TIMES A DAY
     Route: 048
     Dates: end: 20171206
  10. TREMELIMUMAB. [Suspect]
     Active Substance: TREMELIMUMAB
     Indication: NON-SMALL CELL LUNG CANCER
     Route: 042
     Dates: start: 20171207, end: 20171207
  11. PEMETREXED. [Suspect]
     Active Substance: PEMETREXED
     Indication: NON-SMALL CELL LUNG CANCER
     Route: 042
     Dates: start: 20171228, end: 20171228
  12. KLENZO  (IRRIGATION SALINE) [Concomitant]
     Indication: DRY MOUTH
     Dosage: 100.0000MLQD
     Route: 002
     Dates: start: 20180104
  13. MEGESTROL ACETATE. [Concomitant]
     Active Substance: MEGESTROL ACETATE
     Indication: DECREASED APPETITE
     Dosage: 10.0000ML DAILY
     Route: 048
     Dates: start: 20171207
  14. ONSERAN [Concomitant]
     Indication: NAUSEA
     Dosage: 8.0000MG, TWO TIMES A DAY
     Route: 048
     Dates: start: 20171207
  15. MEDI4736 [Suspect]
     Active Substance: DURVALUMAB
     Indication: NON-SMALL CELL LUNG CANCER
     Route: 042
     Dates: start: 20171228, end: 20171228
  16. CARBOPLATIN. [Suspect]
     Active Substance: CARBOPLATIN
     Indication: NON-SMALL CELL LUNG CANCER
     Dosage: 5.0 AUC
     Route: 042
     Dates: start: 20171208, end: 20171208
  17. CARBOPLATIN. [Suspect]
     Active Substance: CARBOPLATIN
     Indication: NON-SMALL CELL LUNG CANCER
     Dosage: 5.0 AUC
     Route: 042
     Dates: start: 20171228, end: 20171228
  18. TREMELIMUMAB. [Suspect]
     Active Substance: TREMELIMUMAB
     Indication: NON-SMALL CELL LUNG CANCER
     Route: 042
     Dates: start: 20171228, end: 20171228
  19. MAG?O (MGO) [Concomitant]
     Indication: CONSTIPATION
     Dosage: 500.0000MG, THREE TIMES A DAY
     Route: 048
     Dates: start: 20171207

REACTIONS (1)
  - Pneumonia [Not Recovered/Not Resolved]

NARRATIVE: CASE EVENT DATE: 20180114
